FAERS Safety Report 18551379 (Version 1)
Quarter: 2020Q4

REPORT INFORMATION
  Report Type: Spontaneous
  Country: CN (occurrence: CN)
  Receive Date: 20201126
  Receipt Date: 20201126
  Transmission Date: 20210114
  Serious: Yes (Other)
  Sender: FDA-Public Use
  Company Number: CN-B.I. PHARMACEUTICALS,INC./RIDGEFIELD-2020-BI-063307

PATIENT
  Age: 73 Year
  Sex: Female
  Weight: 52 kg

DRUGS (2)
  1. COMBIVENT [Suspect]
     Active Substance: ALBUTEROL SULFATE\IPRATROPIUM BROMIDE
     Indication: BRONCHIAL DISORDER
     Route: 055
     Dates: start: 20201020, end: 20201020
  2. SALBUTAMOL SULFATE [Suspect]
     Active Substance: ALBUTEROL SULFATE
     Indication: BRONCHIAL DISORDER
     Dosage: 1 VIAL
     Route: 055
     Dates: start: 20201020, end: 20201020

REACTIONS (9)
  - Tachypnoea [Recovering/Resolving]
  - Chest pain [Recovering/Resolving]
  - Chest discomfort [Recovering/Resolving]
  - Respiratory rate increased [Recovering/Resolving]
  - Dyspnoea [Recovering/Resolving]
  - Mental disorder [Recovering/Resolving]
  - Blood pressure increased [Recovering/Resolving]
  - Hypoaesthesia [Recovering/Resolving]
  - Heart rate increased [Recovering/Resolving]

NARRATIVE: CASE EVENT DATE: 20201020
